FAERS Safety Report 12192058 (Version 1)
Quarter: 2016Q1

REPORT INFORMATION
  Report Type: Spontaneous
  Country: AU (occurrence: AU)
  Receive Date: 20160318
  Receipt Date: 20160318
  Transmission Date: 20160526
  Serious: Yes (Other)
  Sender: FDA-Public Use
  Company Number: PHHY2016AU033857

PATIENT
  Sex: Female

DRUGS (3)
  1. PREGABALIN. [Concomitant]
     Active Substance: PREGABALIN
     Indication: DEPRESSION
     Route: 065
  2. GILENYA [Suspect]
     Active Substance: FINGOLIMOD HYDROCHLORIDE
     Indication: RELAPSING-REMITTING MULTIPLE SCLEROSIS
     Route: 065
  3. ACYCLOVIR. [Concomitant]
     Active Substance: ACYCLOVIR
     Indication: PROPHYLAXIS
     Route: 065

REACTIONS (4)
  - Lymphocyte count decreased [Recovering/Resolving]
  - Migraine [Recovering/Resolving]
  - Seizure [Recovering/Resolving]
  - Encephalitis [Recovering/Resolving]
